FAERS Safety Report 8905264 (Version 1)
Quarter: 2012Q4

REPORT INFORMATION
  Report Type: 
  Country: US (occurrence: US)
  Receive Date: 20121113
  Receipt Date: 20121113
  Transmission Date: 20130627
  Serious: No
  Sender: FDA-Public Use
  Company Number: US-009507513-1211USA002593

PATIENT
  Sex: Male

DRUGS (1)
  1. PEGINTRON [Suspect]
     Dosage: 120 Microgram, qw
     Route: 058

REACTIONS (4)
  - Injection site haemorrhage [Unknown]
  - Underdose [Unknown]
  - Product quality issue [Unknown]
  - Medical device complication [Unknown]
